FAERS Safety Report 17794351 (Version 1)
Quarter: 2020Q2

REPORT INFORMATION
  Report Type: Spontaneous
  Country: BE (occurrence: BE)
  Receive Date: 20200515
  Receipt Date: 20200515
  Transmission Date: 20200714
  Serious: Yes (Other)
  Sender: FDA-Public Use
  Company Number: BE-MYLANLABS-2020M1047666

PATIENT
  Age: 83 Year
  Sex: Female

DRUGS (15)
  1. L-THYROXINE                        /00068001/ [Concomitant]
     Active Substance: LEVOTHYROXINE
     Dosage: 1 DOSAGE FORM, QD (1 DF, QD)
  2. CONTRAMAL [Concomitant]
     Active Substance: TRAMADOL HYDROCHLORIDE
     Dosage: 1 DOSAGE FORM, PRN (AS NECESSARY)
  3. OLANZAPINE. [Suspect]
     Active Substance: OLANZAPINE
     Indication: BEHAVIOUR DISORDER
     Dosage: 1 DOSAGE FORM, QD (1 DF QD, 1/2 TABLET 2X/DAY, TREATMENT WAS SUSPENDED FOR 2 DAYS 11/04 AND 12/04)
     Route: 048
     Dates: start: 20200407
  4. PERINDOPRIL [Concomitant]
     Active Substance: PERINDOPRIL
     Dosage: 1 DOSAGE FORM, QD (1 DF, QD)
  5. METFORMIN [Concomitant]
     Active Substance: METFORMIN HYDROCHLORIDE
     Indication: DIABETES MELLITUS
     Dosage: 2 DOSAGE FORM, QD (2 DF, QD)
  6. UNI DIAMICRON [Concomitant]
     Active Substance: GLICLAZIDE
     Indication: DIABETES MELLITUS
     Dosage: 60 MILLIGRAM, BID (60 MG, BID)
  7. PLAQUENIL [Suspect]
     Active Substance: HYDROXYCHLOROQUINE SULFATE
     Indication: CORONAVIRUS INFECTION
     Dosage: UNK (DAY 1: 400MG 2X/D; DAY 2-4: 200MG 1X/D 7/04 : RECEIVED 2X 400 MG; 08/04 TO 10/04)
     Route: 048
     Dates: start: 20200407, end: 20200410
  8. MOVICOL [Concomitant]
     Active Substance: POLYETHYLENE GLYCOL 3350\POTASSIUM CHLORIDE\SODIUM BICARBONATE\SODIUM CHLORIDE
     Dosage: 1 DOSAGE FORM, QD (1 DF, QD)
  9. KALIUM                             /00031401/ [Concomitant]
     Active Substance: POTASSIUM CHLORIDE
     Indication: SUPPLEMENTATION THERAPY
     Dosage: UNK
     Route: 048
     Dates: start: 20200409
  10. TRAZODONE [Suspect]
     Active Substance: TRAZODONE HYDROCHLORIDE
     Indication: DEPRESSION
     Dosage: 1 DOSAGE FORM, QD (1 DF, QD , 1/4 TABLET IN THE MORNING AND AT NOON AND 1/2 TABLET IN THE)
     Route: 048
  11. CLEXANE [Concomitant]
     Active Substance: ENOXAPARIN SODIUM
     Dosage: UNK
  12. PROLOPA [Concomitant]
     Active Substance: BENSERAZIDE\LEVODOPA
     Dosage: 0.5 DOSAGE FORM, QD (0.5 DF, QD)
  13. ALGOSTASE MONO [Concomitant]
     Dosage: 3 DOSAGE FORM, QD (3 DF, QD)
  14. PRADAXA [Concomitant]
     Active Substance: DABIGATRAN ETEXILATE MESYLATE
     Dosage: UNK
  15. MAGNETOP                           /00434501/ [Concomitant]
     Indication: SUPPLEMENTATION THERAPY
     Dosage: 450 MILLIGRAM, QD (450 MG, QD)
     Route: 048
     Dates: start: 20200410

REACTIONS (3)
  - Electrocardiogram QT prolonged [Recovered/Resolved]
  - Off label use [Unknown]
  - Intentional product misuse [Unknown]

NARRATIVE: CASE EVENT DATE: 20200407
